FAERS Safety Report 25306899 (Version 2)
Quarter: 2025Q3

REPORT INFORMATION
  Report Type: Spontaneous
  Country: US (occurrence: US)
  Receive Date: 20250513
  Receipt Date: 20250707
  Transmission Date: 20251020
  Serious: Yes (Other)
  Sender: SEPTODONT
  Company Number: US-SEPTODONT-2025019615

PATIENT
  Age: 50 Year
  Sex: Male

DRUGS (1)
  1. SEPTOCAINE [Suspect]
     Active Substance: ARTICAINE HYDROCHLORIDE\EPINEPHRINE BITARTRATE
     Indication: Dental local anaesthesia
     Route: 004

REACTIONS (3)
  - Syncope [Recovered/Resolved]
  - Hyperhidrosis [Unknown]
  - Pallor [Unknown]
